FAERS Safety Report 7399919-1 (Version None)
Quarter: 2011Q2

REPORT INFORMATION
  Report Type: 
  Country: None (occurrence: None)
  Receive Date: 20110405
  Receipt Date: 20110405
  Transmission Date: 20111010
  Serious: No
  Sender: FDA-Public Use
  Company Number: None

PATIENT
  Age: 15 Year
  Sex: Female
  Weight: 50.3 kg

DRUGS (3)
  1. VANCOMYCIN [Suspect]
     Indication: CELLULITIS
     Dosage: 1Q IV Q12 OVER 1 HR
     Dates: start: 20100511
  2. MEROPENEM [Concomitant]
  3. IBUPROFEN [Concomitant]

REACTIONS (3)
  - ERYTHEMA [None]
  - PRURITUS GENERALISED [None]
  - INAPPROPRIATE SCHEDULE OF DRUG ADMINISTRATION [None]
